FAERS Safety Report 18992135 (Version 1)
Quarter: 2021Q1

REPORT INFORMATION
  Report Type: Spontaneous
  Country: US (occurrence: US)
  Receive Date: 20210310
  Receipt Date: 20210310
  Transmission Date: 20210420
  Serious: Yes (Life-Threatening)
  Sender: FDA-Public Use
  Company Number: None

PATIENT
  Age: 45 Year
  Sex: Female
  Weight: 53.55 kg

DRUGS (14)
  1. ALBUTEROL INHALATION [Concomitant]
     Active Substance: ALBUTEROL
  2. WOMEN^S DAILY MULTIVITAMIN GUMMY [Concomitant]
  3. BACLOFEN. [Concomitant]
     Active Substance: BACLOFEN
  4. XANAX [Concomitant]
     Active Substance: ALPRAZOLAM
  5. BREO ELLIPTA [Concomitant]
     Active Substance: FLUTICASONE FUROATE\VILANTEROL TRIFENATATE
  6. VICKS VAPOCOOL SORE THROAT [Suspect]
     Active Substance: BENZOCAINE\MENTHOL
     Indication: OROPHARYNGEAL PAIN
     Route: 048
     Dates: start: 20210308, end: 20210309
  7. METOPROLOL. [Concomitant]
     Active Substance: METOPROLOL
  8. LUNESTA [Concomitant]
     Active Substance: ESZOPICLONE
  9. AMOXYCILLIN [Concomitant]
     Active Substance: AMOXICILLIN
  10. CELEBREX [Concomitant]
     Active Substance: CELECOXIB
  11. OMEPRAZOLE. [Concomitant]
     Active Substance: OMEPRAZOLE
  12. ESTRADIOL. [Concomitant]
     Active Substance: ESTRADIOL
  13. POTASSIUM CHLORIDE. [Concomitant]
     Active Substance: POTASSIUM CHLORIDE
  14. MEMANTINE. [Concomitant]
     Active Substance: MEMANTINE

REACTIONS (2)
  - Pharyngeal swelling [None]
  - Throat tightness [None]

NARRATIVE: CASE EVENT DATE: 20210309
